FAERS Safety Report 23591592 (Version 2)
Quarter: 2024Q1

REPORT INFORMATION
  Report Type: Spontaneous
  Country: US (occurrence: US)
  Receive Date: 20240304
  Receipt Date: 20240329
  Transmission Date: 20240409
  Serious: No
  Sender: FDA-Public Use
  Company Number: US-SA-SAC20240227000646

PATIENT
  Age: 20 Year
  Sex: Male

DRUGS (1)
  1. DUPIXENT [Suspect]
     Active Substance: DUPILUMAB
     Indication: Eosinophilic oesophagitis
     Dosage: 300MG QW
     Route: 058
     Dates: start: 202402

REACTIONS (4)
  - Oral mucosal blistering [Unknown]
  - Blister [Unknown]
  - Injection site pain [Unknown]
  - Injection site bruising [Unknown]

NARRATIVE: CASE EVENT DATE: 20240101
